FAERS Safety Report 4340920-X (Version None)
Quarter: 2004Q2

REPORT INFORMATION
  Report Type: 
  Country: None (occurrence: None)
  Receive Date: 20040413
  Receipt Date: 20040330
  Transmission Date: 20050107
  Serious: Yes (Death, Life-Threatening, Hospitalization)
  Sender: FDA-Public Use
  Company Number: S03-341-705

PATIENT
  Age: 62 Year
  Sex: Male
  Weight: 71 kg

DRUGS (4)
  1. VELCADE [Suspect]
     Indication: MULTIPLE MYELOMA
     Dosage: 1.6 MG BIW: INTRAVENOUS BOLUS
     Route: 040
     Dates: start: 20030803, end: 20031012
  2. DEXAMETHASONE [Concomitant]
  3. HEXAKAPRON(TRANEXAMIC ACID) [Concomitant]
  4. KYTRILL(GRANISETRON) [Concomitant]

REACTIONS (15)
  - ASTHENIA [None]
  - BACTERIAL SEPSIS [None]
  - DYSPNOEA [None]
  - FEBRILE NEUTROPENIA [None]
  - GAIT DISTURBANCE [None]
  - HAEMATOMA [None]
  - LEUKAEMIA PLASMACYTIC [None]
  - LUNG CREPITATION [None]
  - OEDEMA PERIPHERAL [None]
  - PANCYTOPENIA [None]
  - PULMONARY OEDEMA [None]
  - RESPIRATORY FAILURE [None]
  - RHONCHI [None]
  - SPEECH DISORDER [None]
  - SUBARACHNOID HAEMORRHAGE [None]
